FAERS Safety Report 9538975 (Version 2)
Quarter: 2014Q1

REPORT INFORMATION
  Report Type: Report from Study
  Country: DE (occurrence: DE)
  Receive Date: 20130920
  Receipt Date: 20140319
  Transmission Date: 20141002
  Serious: Yes (Death, Hospitalization)
  Sender: FDA-Public Use
  Company Number: DE-ASTELLAS-2013US009767

PATIENT
  Age: 74 Year
  Sex: Male

DRUGS (4)
  1. ERLOTINIB TABLET [Suspect]
     Indication: BRONCHIAL CARCINOMA
     Dosage: 150 MG, UID/QD
     Route: 065
     Dates: start: 20130808, end: 20130903
  2. DOMPERIDON                         /00498201/ [Concomitant]
     Indication: VOMITING
     Dosage: 10 MG, UNKNOWN/D
     Route: 048
     Dates: start: 20120603, end: 20130903
  3. NOVAMINSULFON [Concomitant]
     Indication: PAIN
     Dosage: 500 MG/ML, UNKNOWN/D
     Route: 048
     Dates: start: 20120910, end: 20130903
  4. ACC                                /00082801/ [Concomitant]
     Indication: BRONCHIAL CARCINOMA
     Dosage: 600 MG, UID/QD
     Route: 048
     Dates: start: 20130129, end: 20130903

REACTIONS (4)
  - Anaemia [Not Recovered/Not Resolved]
  - Duodenal ulcer perforation [Fatal]
  - Diarrhoea [Unknown]
  - Gastrointestinal haemorrhage [Fatal]
